FAERS Safety Report 12518834 (Version 6)
Quarter: 2018Q3

REPORT INFORMATION
  Report Type: Spontaneous
  Country: GB (occurrence: GB)
  Receive Date: 20160630
  Receipt Date: 20180907
  Transmission Date: 20181010
  Serious: Yes (Other)
  Sender: FDA-Public Use
  Company Number: PHHY2016GB087127

PATIENT

DRUGS (8)
  1. ST. JOHN^S WORT [Concomitant]
     Active Substance: ST. JOHN^S WORT
     Indication: PRODUCT USED FOR UNKNOWN INDICATION
     Dosage: UNK
     Route: 065
     Dates: start: 1999, end: 2005
  2. IMIPRAMINE [Concomitant]
     Active Substance: IMIPRAMINE
     Indication: PRODUCT USED FOR UNKNOWN INDICATION
     Dosage: UNK (FREQUENCY OF PRODUCT :1N)
     Route: 065
     Dates: start: 19950922
  3. ALCOHOL. [Suspect]
     Active Substance: ALCOHOL
     Indication: PRODUCT USED FOR UNKNOWN INDICATION
     Dosage: UNK
     Route: 065
  4. PARACETAMOL [Suspect]
     Active Substance: ACETAMINOPHEN
     Indication: PRODUCT USED FOR UNKNOWN INDICATION
     Dosage: UNK
     Route: 065
  5. PAROXETINE HYDROCHLORIDE. [Suspect]
     Active Substance: PAROXETINE HYDROCHLORIDE
     Indication: DEPRESSION
     Dosage: UNK
     Route: 065
     Dates: start: 19950512
  6. SEROXAT [Suspect]
     Active Substance: PAROXETINE HYDROCHLORIDE
     Indication: DEPRESSION
     Dosage: UNK
     Route: 065
  7. PAXIL [Suspect]
     Active Substance: PAROXETINE HYDROCHLORIDE
     Indication: DEPRESSION
     Dosage: UNK
     Route: 065
     Dates: start: 19950512
  8. PROZAC [Concomitant]
     Active Substance: FLUOXETINE HYDROCHLORIDE
     Indication: PRODUCT USED FOR UNKNOWN INDICATION
     Dosage: UNK
     Route: 065
     Dates: start: 19960131, end: 1999

REACTIONS (16)
  - Suicide attempt [Unknown]
  - Anxiety [Recovered/Resolved]
  - Tearfulness [Unknown]
  - Anxiety [Recovered/Resolved]
  - Fatigue [Unknown]
  - Crying [Unknown]
  - Hunger [Unknown]
  - Nightmare [Unknown]
  - Mood swings [Unknown]
  - Overdose [Unknown]
  - Social avoidant behaviour [Unknown]
  - Binge eating [Unknown]
  - Aggression [Unknown]
  - Drug withdrawal syndrome [Unknown]
  - Depression [Unknown]
  - Derealisation [Unknown]

NARRATIVE: CASE EVENT DATE: 19950523
